FAERS Safety Report 10966802 (Version 1)
Quarter: 2015Q1

REPORT INFORMATION
  Report Type: Report from Study
  Country: US (occurrence: US)
  Receive Date: 20150330
  Receipt Date: 20150330
  Transmission Date: 20150721
  Serious: Yes (Hospitalization)
  Sender: FDA-Public Use
  Company Number: US-ACTELION-A-NJ2015-115323

PATIENT
  Age: 50 Year
  Sex: Female

DRUGS (1)
  1. VELETRI [Suspect]
     Active Substance: EPOPROSTENOL
     Indication: PULMONARY ARTERIAL HYPERTENSION
     Dosage: 10.8 NG/KG, PER MIN
     Route: 042

REACTIONS (5)
  - Liver function test abnormal [Unknown]
  - Ascites [Unknown]
  - Hypotension [Unknown]
  - Pain in jaw [Unknown]
  - Dizziness [Unknown]

NARRATIVE: CASE EVENT DATE: 201501
